FAERS Safety Report 10796088 (Version 2)
Quarter: 2015Q1

REPORT INFORMATION
  Report Type: Report from Study
  Country: SG (occurrence: SG)
  Receive Date: 20150216
  Receipt Date: 20150218
  Transmission Date: 20150721
  Serious: Yes (Hospitalization)
  Sender: FDA-Public Use
  Company Number: SG-ROCHE-1535251

PATIENT
  Age: 61 Year
  Sex: Female

DRUGS (2)
  1. CEFTRIAXONE. [Suspect]
     Active Substance: CEFTRIAXONE
     Indication: BILIARY SEPSIS
     Route: 042
  2. MEROPENEM. [Concomitant]
     Active Substance: MEROPENEM
     Indication: BILIARY SEPSIS
     Dosage: OM (ONCE IN THE MORNING)
     Route: 042

REACTIONS (1)
  - Acute generalised exanthematous pustulosis [Recovered/Resolved]
